FAERS Safety Report 5759876-8 (Version None)
Quarter: 2008Q2

REPORT INFORMATION
  Report Type: 
  Country: None (occurrence: None)
  Receive Date: 20080605
  Receipt Date: 20080528
  Transmission Date: 20081010
  Serious: Yes (Other)
  Sender: FDA-Public Use
  Company Number: PHNU2007DE03259

PATIENT
  Sex: Male
  Weight: 64 kg

DRUGS (2)
  1. TOBI [Suspect]
     Indication: LUNG INFECTION PSEUDOMONAL
     Dosage: 2 INHALATIONS/DAY (EVERY 12 HOURS)
     Dates: start: 20070817, end: 20070819
  2. TOBI [Suspect]
     Dosage: INHALATIONS/DAY (EVERY 12 HOURS)

REACTIONS (18)
  - BRAIN NATRIURETIC PEPTIDE INCREASED [None]
  - CARDIAC FAILURE [None]
  - CARDIAC HYPERTROPHY [None]
  - CARDIOMYOPATHY [None]
  - CHEST X-RAY ABNORMAL [None]
  - CHRONIC OBSTRUCTIVE PULMONARY DISEASE [None]
  - CONDITION AGGRAVATED [None]
  - DYSPNOEA [None]
  - DYSPNOEA AT REST [None]
  - EXPIRATORY RESERVE VOLUME DECREASED [None]
  - FORCED EXPIRATORY VOLUME DECREASED [None]
  - HYPOXIA [None]
  - LYMPHOCYTE COUNT DECREASED [None]
  - NEUTROPHIL COUNT INCREASED [None]
  - PNEUMONIA [None]
  - PULMONARY VASCULAR DISORDER [None]
  - VITAL CAPACITY DECREASED [None]
  - WHITE BLOOD CELL COUNT INCREASED [None]
